FAERS Safety Report 23965450 (Version 3)
Quarter: 2024Q3

REPORT INFORMATION
  Report Type: Spontaneous
  Country: CA (occurrence: CA)
  Receive Date: 20240612
  Receipt Date: 20240730
  Transmission Date: 20241016
  Serious: Yes (Other)
  Sender: INTERCEPT PHARMACEUTICALS
  Company Number: CA-ADVANZ PHARMA-202306004828

PATIENT
  Age: 72 Year
  Sex: Female

DRUGS (3)
  1. OCALIVA [Suspect]
     Active Substance: OBETICHOLIC ACID
     Indication: Primary biliary cholangitis
     Dosage: 5 MG, QD (OCALIVA)
     Route: 048
     Dates: start: 202306, end: 202403
  2. OCALIVA [Suspect]
     Active Substance: OBETICHOLIC ACID
     Dosage: 10 MG, QD (OCALIVA)
     Route: 048
  3. URSODIOL [Concomitant]
     Active Substance: URSODIOL
     Dosage: 1000 MG

REACTIONS (9)
  - Renal stone removal [Unknown]
  - Pain [Unknown]
  - Sleep disorder [Recovering/Resolving]
  - Pruritus [Recovering/Resolving]
  - Rash [Unknown]
  - Fatigue [Unknown]
  - Drug ineffective [Unknown]
  - Product dose omission issue [Unknown]
  - Product availability issue [Unknown]
